FAERS Safety Report 9198889 (Version 3)
Quarter: 2013Q2

REPORT INFORMATION
  Report Type: Spontaneous
  Country: US (occurrence: US)
  Receive Date: 20130329
  Receipt Date: 20130502
  Transmission Date: 20140414
  Serious: Yes (Other)
  Sender: FDA-Public Use
  Company Number: US-MERCK-1303USA012070

PATIENT
  Age: 52 Year
  Sex: Female
  Weight: 68.27 kg

DRUGS (4)
  1. VICTRELIS [Suspect]
     Indication: HEPATITIS C
     Dosage: 800 MG, TID
     Route: 048
     Dates: start: 20121018, end: 20130301
  2. PEG-INTRON [Suspect]
     Indication: HEPATITIS C
     Dosage: 120MCG/.5ML
     Dates: end: 201303
  3. REBETOL [Suspect]
     Indication: HEPATITIS C
     Dosage: UNK
     Route: 048
     Dates: end: 201303
  4. PEGASYS [Suspect]
     Dosage: UNK

REACTIONS (4)
  - Tremor [Recovered/Resolved]
  - Depression [Recovered/Resolved]
  - Anaemia [Recovered/Resolved]
  - Asthenia [Unknown]
